FAERS Safety Report 21978414 (Version 1)
Quarter: 2023Q1

REPORT INFORMATION
  Report Type: Spontaneous
  Country: US (occurrence: US)
  Receive Date: 20230210
  Receipt Date: 20230210
  Transmission Date: 20230418
  Serious: Yes (Other)
  Sender: FDA-Public Use
  Company Number: US-TEVA-2021-US-1943120

PATIENT
  Age: 50 Year
  Sex: Female

DRUGS (2)
  1. COPAXONE [Suspect]
     Active Substance: GLATIRAMER ACETATE
     Indication: Product used for unknown indication
     Route: 065
     Dates: start: 20200917
  2. VICTOZA [Suspect]
     Active Substance: LIRAGLUTIDE
     Indication: Product used for unknown indication
     Route: 065

REACTIONS (15)
  - Multiple sclerosis [Unknown]
  - Nasal inflammation [Unknown]
  - Ear pain [Unknown]
  - Tinnitus [Unknown]
  - Blood cholesterol abnormal [Unknown]
  - Ear discomfort [Unknown]
  - Dry mouth [Unknown]
  - Nasal dryness [Unknown]
  - Mouth swelling [Unknown]
  - Blood pressure abnormal [Unknown]
  - Paranasal sinus discomfort [Unknown]
  - Vitamin D abnormal [Unknown]
  - Back pain [Unknown]
  - Renal disorder [Unknown]
  - Influenza like illness [Unknown]
